FAERS Safety Report 23984108 (Version 5)
Quarter: 2024Q4

REPORT INFORMATION
  Report Type: Report from Study
  Country: US (occurrence: US)
  Receive Date: 20240618
  Receipt Date: 20241223
  Transmission Date: 20250114
  Serious: Yes (Other)
  Sender: UCB
  Company Number: US-UCBSA-2024007323

PATIENT
  Age: 16 Year
  Sex: Male
  Weight: 45.35 kg

DRUGS (5)
  1. FINTEPLA [Suspect]
     Active Substance: FENFLURAMINE
     Indication: Severe myoclonic epilepsy of infancy
     Dosage: 5.9 MILLILITER, 2X/DAY (BID)
     Dates: start: 20231123, end: 2024
  2. FINTEPLA [Suspect]
     Active Substance: FENFLURAMINE
     Dosage: 4 MILLILITER, 2X/DAY (BID)
     Route: 048
  3. FINTEPLA [Suspect]
     Active Substance: FENFLURAMINE
     Dosage: 8 MILLIGRAM/DAY
  4. VITAMINS NOS [Concomitant]
     Active Substance: VITAMINS
     Indication: Product used for unknown indication
     Dosage: UNK, DAILY
  5. VALPROIC ACID [Concomitant]
     Active Substance: VALPROIC ACID
     Indication: Product used for unknown indication
     Dosage: 15 MILLILITER, 2X/DAY (BID)

REACTIONS (5)
  - Tricuspid valve incompetence [Not Recovered/Not Resolved]
  - Pulmonary valve incompetence [Not Recovered/Not Resolved]
  - Mitral valve incompetence [Unknown]
  - Fatigue [Unknown]
  - Hypersomnia [Recovering/Resolving]

NARRATIVE: CASE EVENT DATE: 20240603
